FAERS Safety Report 11300675 (Version 1)
Quarter: 2015Q3

REPORT INFORMATION
  Report Type: Spontaneous
  Country: US (occurrence: US)
  Receive Date: 20150722
  Receipt Date: 20150722
  Transmission Date: 20151125
  Serious: Yes (Other)
  Sender: FDA-Public Use
  Company Number: US-ELI_LILLY_AND_COMPANY-US201402005675

PATIENT
  Sex: Male

DRUGS (6)
  1. LIPITOR [Concomitant]
     Active Substance: ATORVASTATIN CALCIUM
  2. ASPIRIN. [Suspect]
     Active Substance: ASPIRIN
     Indication: MYOCARDIAL INFARCTION
     Dosage: 162 MG, EACH MORNING
     Route: 065
     Dates: start: 201210
  3. COREG [Concomitant]
     Active Substance: CARVEDILOL
  4. LISINOPRIL. [Concomitant]
     Active Substance: LISINOPRIL
  5. KLONOPIN [Concomitant]
     Active Substance: CLONAZEPAM
  6. EFFIENT [Suspect]
     Active Substance: PRASUGREL HYDROCHLORIDE
     Indication: MYOCARDIAL INFARCTION
     Dosage: 10 MG, EACH MORNING
     Route: 065
     Dates: start: 201210

REACTIONS (9)
  - Asthenia [Unknown]
  - Dizziness [Unknown]
  - Rectal haemorrhage [Recovered/Resolved]
  - Tinnitus [Unknown]
  - Somnolence [Unknown]
  - Blood glucose decreased [Unknown]
  - Gastritis [Unknown]
  - Fatigue [Unknown]
  - Contusion [Unknown]
